FAERS Safety Report 14253155 (Version 1)
Quarter: 2017Q4

REPORT INFORMATION
  Report Type: Report from Study
  Country: US (occurrence: US)
  Receive Date: 20171206
  Receipt Date: 20171206
  Transmission Date: 20180321
  Serious: No
  Sender: FDA-Public Use
  Company Number: PHEH2017US039262

PATIENT
  Age: 40 Year
  Sex: Female
  Weight: 72.56 kg

DRUGS (1)
  1. GLATOPA [Suspect]
     Active Substance: GLATIRAMER ACETATE
     Indication: MULTIPLE SCLEROSIS
     Dosage: 20 MG, QD (ROTATES ALL SITES)
     Route: 058
     Dates: start: 20171016

REACTIONS (3)
  - Burning sensation [Not Recovered/Not Resolved]
  - Injection site pain [Not Recovered/Not Resolved]
  - Tenderness [Not Recovered/Not Resolved]

NARRATIVE: CASE EVENT DATE: 20171016
